FAERS Safety Report 7252046-6 (Version None)
Quarter: 2011Q1

REPORT INFORMATION
  Report Type: 
  Country: None (occurrence: None)
  Receive Date: 20110128
  Receipt Date: 20100205
  Transmission Date: 20110831
  Serious: No
  Sender: FDA-Public Use
  Company Number: US-ABBOTT-10P-163-0620834-00

PATIENT
  Sex: Male

DRUGS (3)
  1. TOPICAL CREAMS [Concomitant]
     Indication: PSORIASIS
  2. HUMIRA [Suspect]
     Indication: PSORIASIS
     Dates: start: 20091226, end: 20091226
  3. HUMIRA [Suspect]
     Dates: start: 20100104, end: 20100115

REACTIONS (5)
  - NIGHT SWEATS [None]
  - TINNITUS [None]
  - NODULE [None]
  - AXILLARY MASS [None]
  - INSOMNIA [None]
